FAERS Safety Report 9313959 (Version 1)
Quarter: 2013Q2

REPORT INFORMATION
  Report Type: Spontaneous
  Country: GB (occurrence: GB)
  Receive Date: 20130529
  Receipt Date: 20130529
  Transmission Date: 20140414
  Serious: Yes (Other)
  Sender: FDA-Public Use
  Company Number: GB-009507513-1305GBR014966

PATIENT
  Age: 55 Year
  Sex: Female
  Weight: 76.3 kg

DRUGS (2)
  1. NASONEX [Suspect]
     Dosage: UNK
     Dates: start: 20130328, end: 20130427
  2. LEVOTHYROXINE SODIUM [Concomitant]
     Dosage: UNK
     Dates: start: 20130125, end: 20130419

REACTIONS (5)
  - Allergic cough [Unknown]
  - Pain [Unknown]
  - Urticaria [Recovered/Resolved]
  - Dyspnoea [Recovered/Resolved]
  - Wheezing [Unknown]
